FAERS Safety Report 19878563 (Version 1)
Quarter: 2021Q3

REPORT INFORMATION
  Report Type: Spontaneous
  Country: PL (occurrence: PL)
  Receive Date: 20210924
  Receipt Date: 20210924
  Transmission Date: 20211014
  Serious: Yes (Other)
  Sender: FDA-Public Use
  Company Number: PL-TEVA-2021-PL-1949766

PATIENT
  Age: 73 Year
  Sex: Female

DRUGS (5)
  1. METHYLPREDNISOLONE. [Suspect]
     Active Substance: METHYLPREDNISOLONE
     Indication: PUSTULAR PSORIASIS
     Dosage: 16 MILLIGRAM DAILY;
     Route: 048
  2. ACITRETIN. [Suspect]
     Active Substance: ACITRETIN
     Indication: PUSTULAR PSORIASIS
     Dosage: 50 MILLIGRAM DAILY;
     Route: 065
  3. INFLIXIMAB [Suspect]
     Active Substance: INFLIXIMAB
     Indication: PUSTULAR PSORIASIS
     Route: 041
  4. CYCLOSPORINE A [Suspect]
     Active Substance: CYCLOSPORINE
     Indication: PUSTULAR PSORIASIS
     Dosage: 300?400MG/DAY
     Route: 065
  5. METHOTREXATE. [Suspect]
     Active Substance: METHOTREXATE
     Indication: PUSTULAR PSORIASIS
     Route: 048

REACTIONS (6)
  - Alopecia [Unknown]
  - Dermatitis allergic [Unknown]
  - Epistaxis [Unknown]
  - Nephropathy toxic [Unknown]
  - Herpes zoster [Unknown]
  - Drug ineffective [Unknown]
